FAERS Safety Report 5656844-1 (Version None)
Quarter: 2008Q1

REPORT INFORMATION
  Report Type: 
  Country: None (occurrence: None)
  Receive Date: 20080310
  Receipt Date: 20080304
  Transmission Date: 20080703
  Serious: Yes (Other)
  Sender: FDA-Public Use
  Company Number: FR-BRISTOL-MYERS SQUIBB COMPANY-14105506

PATIENT
  Age: 83 Year
  Sex: Male

DRUGS (3)
  1. SINEMET [Suspect]
     Indication: PARKINSON'S DISEASE
     Dosage: 1 DOSAGE FORM = 1 TAB. STARTED IN NOV07; 2.5 TABS BID. FROM JAN08; 1 TAB TID
     Dates: start: 20071101
  2. OTRASEL [Concomitant]
  3. STABLON [Concomitant]

REACTIONS (6)
  - ABDOMINAL PAIN [None]
  - ANXIETY [None]
  - APHASIA [None]
  - INSOMNIA [None]
  - VERTIGO [None]
  - WEIGHT DECREASED [None]
